FAERS Safety Report 6980147-6 (Version None)
Quarter: 2010Q3

REPORT INFORMATION
  Report Type: 
  Country: None (occurrence: None)
  Receive Date: 20100914
  Receipt Date: 20100907
  Transmission Date: 20110219
  Serious: Yes (Other)
  Sender: FDA-Public Use
  Company Number: JP-ASTRAZENECA-2010SE42000

PATIENT
  Age: 23 Year
  Sex: Male

DRUGS (3)
  1. PROPOFOL [Suspect]
  2. PROPOFOL [Suspect]
     Dosage: INCREASED RATE
  3. MIDAZOLAM HCL [Concomitant]

REACTIONS (1)
  - GRAND MAL CONVULSION [None]
